FAERS Safety Report 7654839-X (Version None)
Quarter: 2011Q3

REPORT INFORMATION
  Report Type: 
  Country: None (occurrence: None)
  Receive Date: 20110803
  Receipt Date: 20110803
  Transmission Date: 20111222
  Serious: Yes (Other)
  Sender: FDA-Public Use
  Company Number: None

PATIENT
  Sex: Male

DRUGS (1)
  1. COPAXONE [Suspect]
     Dosage: 20MG DAILY SQ
     Route: 058
     Dates: start: 20101123, end: 20110730

REACTIONS (6)
  - CHILLS [None]
  - NASAL CONGESTION [None]
  - EYE SWELLING [None]
  - RASH GENERALISED [None]
  - FLUSHING [None]
  - THROAT TIGHTNESS [None]
